FAERS Safety Report 5156882-1 (Version None)
Quarter: 2006Q4

REPORT INFORMATION
  Report Type: 
  Country: None (occurrence: None)
  Receive Date: 20060918
  Receipt Date: 20060610
  Transmission Date: 20070319
  Serious: Yes (Other)
  Sender: FDA-Public Use
  Company Number: US-JNJFOC-20060602601

PATIENT
  Age: 25 Year
  Sex: Female

DRUGS (2)
  1. TOPAMAX [Suspect]
     Indication: MIGRAINE PROPHYLAXIS
     Dosage: 50 MG, 1 IN 1 DAY, ORAL ; 25 MG, 1 IN 1 DAY ORAL
     Route: 048
     Dates: end: 20060608
  2. TOPAMAX [Suspect]
     Indication: MIGRAINE PROPHYLAXIS
     Dosage: 50 MG, 1 IN 1 DAY, ORAL ; 25 MG, 1 IN 1 DAY ORAL
     Route: 048
     Dates: start: 20060608

REACTIONS (2)
  - EYE PAIN [None]
  - VISUAL DISTURBANCE [None]
